FAERS Safety Report 24676666 (Version 2)
Quarter: 2025Q1

REPORT INFORMATION
  Report Type: Report from Study
  Country: US (occurrence: US)
  Receive Date: 20241128
  Receipt Date: 20250218
  Transmission Date: 20250408
  Serious: No
  Sender: ABBVIE
  Company Number: US-ABBVIE-6022172

PATIENT
  Age: 68 Year
  Sex: Female
  Weight: 84 kg

DRUGS (1)
  1. VENCLEXTA [Suspect]
     Active Substance: VENETOCLAX
     Indication: Acute myeloid leukaemia
     Dosage: PILL, TAKEN 10 DAYS, LAST ADMIN DATE: JUN 2024
     Route: 048
     Dates: start: 20240611

REACTIONS (3)
  - Dry skin [Unknown]
  - Decreased appetite [Unknown]
  - Off label use [Unknown]
